FAERS Safety Report 19641739 (Version 1)
Quarter: 2021Q3

REPORT INFORMATION
  Report Type: Spontaneous
  Country: CA (occurrence: CA)
  Receive Date: 20210730
  Receipt Date: 20210730
  Transmission Date: 20211014
  Serious: Yes (Hospitalization)
  Sender: FDA-Public Use
  Company Number: CA-ALLERGAN-2126995US

PATIENT
  Sex: Male

DRUGS (14)
  1. APO?METOPROLOL [Suspect]
     Active Substance: METOPROLOL
     Indication: CORONARY ARTERY DISEASE
     Dosage: 50 MG, QD
     Route: 065
  2. PANTOPRAZOLE [Suspect]
     Active Substance: PANTOPRAZOLE
     Indication: GASTROINTESTINAL HAEMORRHAGE
     Dosage: 40 MG, BID
     Route: 065
  3. ESCITALOPRAM OXALATE ? BP [Suspect]
     Active Substance: ESCITALOPRAM OXALATE
     Indication: DEPRESSION
     Dosage: 5 MG, QD
     Route: 065
  4. APO?LORAZEPAM [Suspect]
     Active Substance: LORAZEPAM
     Dosage: 0.5 MG, QD
     Route: 065
  5. TELMISARTAN. [Suspect]
     Active Substance: TELMISARTAN
     Indication: CORONARY ARTERY DISEASE
     Dosage: 40 MG, QD
     Route: 065
  6. PREDNISONE. [Concomitant]
     Active Substance: PREDNISONE
     Indication: PEMPHIGOID
     Route: 065
  7. APO?LORAZEPAM [Suspect]
     Active Substance: LORAZEPAM
     Indication: INSOMNIA
     Dosage: 1 MG, QD
     Route: 065
  8. LOPERAMIDE [Concomitant]
     Active Substance: LOPERAMIDE
     Indication: DIARRHOEA
     Route: 065
  9. TELMISARTAN. [Suspect]
     Active Substance: TELMISARTAN
     Dosage: 80 MG, QD
     Route: 065
  10. ESCITALOPRAM OXALATE ? BP [Suspect]
     Active Substance: ESCITALOPRAM OXALATE
     Dosage: 10 MG, QD
     Route: 065
  11. APO?LORAZEPAM [Suspect]
     Active Substance: LORAZEPAM
     Dosage: 0.25 MG, QD
     Route: 065
  12. APO?METOPROLOL [Suspect]
     Active Substance: METOPROLOL
     Indication: MYOCARDIAL INFARCTION
     Dosage: 25 MG, QD
     Route: 065
  13. TELMISARTAN. [Suspect]
     Active Substance: TELMISARTAN
     Indication: MYOCARDIAL INFARCTION
     Dosage: 20 MG, QD
     Route: 065
  14. TAMSULOSIN CR [Concomitant]
     Active Substance: TAMSULOSIN
     Indication: NOCTURIA
     Route: 065

REACTIONS (14)
  - Sedation complication [Recovered/Resolved]
  - Dizziness [Recovered/Resolved]
  - Anal incontinence [Recovered/Resolved]
  - Skin laceration [Recovered/Resolved]
  - Diarrhoea [Recovered/Resolved]
  - Depressed mood [Recovered/Resolved]
  - Vitamin D deficiency [Recovered/Resolved]
  - Fall [Recovered/Resolved]
  - Hyponatraemia [Recovered/Resolved]
  - Somnolence [Recovered/Resolved]
  - Orthostatic hypotension [Recovered/Resolved]
  - Vitamin B12 deficiency [Recovered/Resolved]
  - Balance disorder [Recovered/Resolved]
  - Fatigue [Recovered/Resolved]
